FAERS Safety Report 9560884 (Version 1)
Quarter: 2013Q3

REPORT INFORMATION
  Report Type: Spontaneous
  Country: US (occurrence: US)
  Receive Date: 20130927
  Receipt Date: 20130927
  Transmission Date: 20140515
  Serious: No
  Sender: FDA-Public Use
  Company Number: US-BIOGENIDEC-2013BI055126

PATIENT
  Sex: Female

DRUGS (6)
  1. TECFIDERA [Suspect]
     Indication: MULTIPLE SCLEROSIS
     Route: 048
     Dates: start: 20130529
  2. MELATONIN [Concomitant]
  3. BISOPROLOL-HYDROCHOLOROTHUAZIDE [Concomitant]
  4. BACLOFEN [Concomitant]
  5. MECLIZINE HCL [Concomitant]
  6. BACLOFEN [Concomitant]

REACTIONS (1)
  - Pruritus [Unknown]
